FAERS Safety Report 13765826 (Version 1)
Quarter: 2017Q3

REPORT INFORMATION
  Report Type: Spontaneous
  Country: US (occurrence: US)
  Receive Date: 20170718
  Receipt Date: 20170718
  Transmission Date: 20171127
  Serious: Yes (Hospitalization)
  Sender: FDA-Public Use
  Company Number: None

PATIENT
  Age: 81 Year
  Sex: Female

DRUGS (13)
  1. IBRANCE [Suspect]
     Active Substance: PALBOCICLIB
     Indication: BREAST CANCER FEMALE
     Route: 048
     Dates: start: 20160809, end: 201707
  2. CALTRATE +D [Concomitant]
  3. SUDAFED [Concomitant]
     Active Substance: PSEUDOEPHEDRINE HYDROCHLORIDE
  4. ADVAIR HFA [Concomitant]
     Active Substance: FLUTICASONE PROPIONATE\SALMETEROL XINAFOATE
  5. FOLIC ACID. [Concomitant]
     Active Substance: FOLIC ACID
  6. XARELTO [Concomitant]
     Active Substance: RIVAROXABAN
  7. ANASTROZOLE. [Concomitant]
     Active Substance: ANASTROZOLE
  8. DOCQLACE [Concomitant]
     Active Substance: DOCUSATE SODIUM
  9. LORATADINE. [Concomitant]
     Active Substance: LORATADINE
  10. CLONAZEPAM. [Concomitant]
     Active Substance: CLONAZEPAM
  11. LEVOTHYROXIN [Concomitant]
     Active Substance: LEVOTHYROXINE
  12. PREDNISONE. [Concomitant]
     Active Substance: PREDNISONE
  13. GLIPIZIDE. [Concomitant]
     Active Substance: GLIPIZIDE

REACTIONS (2)
  - Drug dose omission [None]
  - Faecaloma [None]
